FAERS Safety Report 24212926 (Version 1)
Quarter: 2024Q3

REPORT INFORMATION
  Report Type: Spontaneous
  Country: US (occurrence: US)
  Receive Date: 20240815
  Receipt Date: 20240815
  Transmission Date: 20241016
  Serious: Yes (Hospitalization)
  Sender: MYLAN
  Company Number: US-MYLANLABS-2024M1074714

PATIENT
  Age: 52 Year
  Sex: Female

DRUGS (1)
  1. TRANEXAMIC ACID [Suspect]
     Active Substance: TRANEXAMIC ACID
     Indication: Procoagulant therapy
     Dosage: 20 MILLIGRAM/KILOGRAM
     Route: 065

REACTIONS (1)
  - Deep vein thrombosis [Recovered/Resolved]
